FAERS Safety Report 21686672 (Version 1)
Quarter: 2022Q4

REPORT INFORMATION
  Report Type: Spontaneous
  Country: US (occurrence: US)
  Receive Date: 20221206
  Receipt Date: 20221206
  Transmission Date: 20230113
  Serious: No
  Sender: FDA-Public Use
  Company Number: US-ORGANON-O2211USA002230

PATIENT
  Age: 21 Year
  Sex: Female
  Weight: 59.25 kg

DRUGS (1)
  1. NEXPLANON [Suspect]
     Active Substance: ETONOGESTREL
     Dosage: 1 IMPLANT OF 68MG EVERY 3 YEARS IN RIGHT ARM
     Dates: start: 20221118

REACTIONS (4)
  - Complication of device insertion [Recovered/Resolved]
  - Wrong technique in device usage process [Unknown]
  - Product quality issue [Unknown]
  - No adverse event [Unknown]

NARRATIVE: CASE EVENT DATE: 20221118
